FAERS Safety Report 11018070 (Version 2)
Quarter: 2015Q2

REPORT INFORMATION
  Report Type: Spontaneous
  Country: US (occurrence: US)
  Receive Date: 20150412
  Receipt Date: 20150524
  Transmission Date: 20150821
  Serious: Yes (Other)
  Sender: FDA-Public Use
  Company Number: US-JNJFOC-20150120470

PATIENT

DRUGS (2)
  1. ALDOXORUBICIN [Suspect]
     Active Substance: DOXORUBICIN
     Indication: SMALL CELL LUNG CANCER
     Dosage: DAY 1 ON CYCLES 1 AND 3
     Route: 065
  2. DOXORUBICIN HYDROCHLORIDE. [Suspect]
     Active Substance: DOXORUBICIN HYDROCHLORIDE
     Indication: SMALL CELL LUNG CANCER
     Dosage: DAY 1 ON CYCLES 1 AND 3
     Route: 042

REACTIONS (4)
  - Product use issue [Unknown]
  - Neutropenia [Unknown]
  - Anaemia [Unknown]
  - Thrombocytopenia [Unknown]
